FAERS Safety Report 7990872-6 (Version None)
Quarter: 2011Q4

REPORT INFORMATION
  Report Type: 
  Country: None (occurrence: None)
  Receive Date: 20111123
  Receipt Date: 20110923
  Transmission Date: 20120403
  Serious: No
  Sender: FDA-Public Use
  Company Number: 337936

PATIENT
  Age: 79 Year
  Sex: Male

DRUGS (1)
  1. VICTOZA [Suspect]
     Indication: TYPE 2 DIABETES MELLITUS
     Dosage: 0.6 MG, QD, SUBCUTANEOUS
     Route: 058
     Dates: start: 20110509, end: 20110620

REACTIONS (7)
  - HYPERHIDROSIS [None]
  - ABNORMAL FAECES [None]
  - FLATULENCE [None]
  - NAUSEA [None]
  - ABDOMINAL PAIN UPPER [None]
  - HICCUPS [None]
  - DIZZINESS [None]
